FAERS Safety Report 12695049 (Version 1)
Quarter: 2016Q3

REPORT INFORMATION
  Report Type: Report from Study
  Country: GR (occurrence: GR)
  Receive Date: 20160829
  Receipt Date: 20160829
  Transmission Date: 20161109
  Serious: Yes (Death, Other)
  Sender: FDA-Public Use
  Company Number: GR-MYLANLABS-2016M1036380

PATIENT

DRUGS (4)
  1. CISPLATIN. [Suspect]
     Active Substance: CISPLATIN
     Indication: NON-SMALL CELL LUNG CANCER
     Dosage: 70 MG/M2 ON DAY 1, REPEATED EVERY 21 DAYS
     Route: 065
  2. GEMCITABINE [Suspect]
     Active Substance: GEMCITABINE\GEMCITABINE HYDROCHLORIDE
     Indication: NON-SMALL CELL LUNG CANCER
     Dosage: 1000 MG/M2 ON DAYS 1 AND 8, REPEATED EVERY 21 DAYS
     Route: 065
  3. VELCADE [Suspect]
     Active Substance: BORTEZOMIB
     Dosage: 1 MG/M2 ON DAYS 1 AND 8, REPEATED EVERY 21 DAYS
     Route: 065
  4. VELCADE [Suspect]
     Active Substance: BORTEZOMIB
     Indication: NON-SMALL CELL LUNG CANCER
     Dosage: 1 MG/M2 ON DAYS 1 AND 8 OF 21 DAY TREATMENT CYCLE
     Route: 042

REACTIONS (5)
  - Pulmonary haemorrhage [Fatal]
  - Anaemia [Unknown]
  - Respiratory failure [Fatal]
  - Neutropenia [Unknown]
  - Thrombocytopenia [Unknown]
